FAERS Safety Report 8785445 (Version 1)
Quarter: 2012Q4

REPORT INFORMATION
  Report Type: Spontaneous
  Country: US (occurrence: None)
  Receive Date: 20120904
  Receipt Date: 20120904
  Transmission Date: 20130627
  Serious: Yes (Other)
  Sender: FDA-Public Use
  Company Number: AUR-APL-2012-03750

PATIENT
  Age: 55 Year
  Sex: Female

DRUGS (4)
  1. PEG-INTERFERON ALFA 2A [Suspect]
     Indication: HEPATITIS C
  2. PEG-INTERFERON ALFA 2A [Suspect]
     Indication: HEPATIC CIRRHOSIS
  3. TELAPREVIR [Suspect]
     Indication: HEPATITIS C
  4. TELAPREVIR [Suspect]
     Indication: HEPATIC CIRRHOSIS

REACTIONS (4)
  - Drug reaction with eosinophilia and systemic symptoms [None]
  - Superinfection bacterial [None]
  - Staphylococcal infection [None]
  - Bacteraemia [None]
